FAERS Safety Report 24991643 (Version 1)
Quarter: 2025Q1

REPORT INFORMATION
  Report Type: Spontaneous
  Country: US (occurrence: US)
  Receive Date: 20250220
  Receipt Date: 20250220
  Transmission Date: 20250409
  Serious: Yes (Other)
  Sender: LOREAL
  Company Number: US-LOREAL USA SD, INC.-2025LOR00009

PATIENT
  Sex: Female

DRUGS (1)
  1. LA ROCHE-POSAY EFFACLAR DUO DUAL ACTION ACNE TREATMENT [Suspect]
     Active Substance: BENZOYL PEROXIDE
     Dates: start: 2025, end: 2025

REACTIONS (1)
  - Hypersensitivity [Unknown]

NARRATIVE: CASE EVENT DATE: 20250101
